FAERS Safety Report 6100950-4 (Version None)
Quarter: 2009Q1

REPORT INFORMATION
  Report Type: 
  Country: None (occurrence: None)
  Receive Date: 20090225
  Receipt Date: 20090217
  Transmission Date: 20090719
  Serious: Yes (Other)
  Sender: FDA-Public Use
  Company Number: CHNY2009CH01018

PATIENT
  Age: 49 Year
  Sex: Female

DRUGS (8)
  1. TAVEGYL (NCH) (CLEMASTINE HYDROGEN FUMARATE) UNKNOWN [Suspect]
     Dates: start: 20090201, end: 20090203
  2. VENOFER [Suspect]
     Indication: GASTRITIS ATROPHIC
     Dosage: 300 MG, QD, INTRAVENOUS
     Route: 042
     Dates: start: 20090201, end: 20090201
  3. VENOFER [Suspect]
     Indication: IRON DEFICIENCY ANAEMIA
     Dosage: 300 MG, QD, INTRAVENOUS
     Route: 042
     Dates: start: 20090201, end: 20090201
  4. SOLU-CORTEF [Concomitant]
  5. METOPROLOL SUCCINATE [Concomitant]
  6. LISINOPRIL [Concomitant]
  7. PROGESTERONE [Concomitant]
  8. ESTROGENIC SUBSTANCE [Concomitant]

REACTIONS (8)
  - ANAPHYLACTIC REACTION [None]
  - ANAPHYLACTOID REACTION [None]
  - BRADYCARDIA [None]
  - BURNING SENSATION [None]
  - FEELING HOT [None]
  - HYPOVOLAEMIA [None]
  - INFUSION RELATED REACTION [None]
  - INJECTION SITE URTICARIA [None]
